FAERS Safety Report 7124769-0 (Version None)
Quarter: 2010Q4

REPORT INFORMATION
  Report Type: 
  Country: None (occurrence: None)
  Receive Date: 20101129
  Receipt Date: 20101119
  Transmission Date: 20110411
  Serious: Yes (Other)
  Sender: FDA-Public Use
  Company Number: ES-BRISTOL-MYERS SQUIBB COMPANY-15330475

PATIENT
  Age: 76 Year
  Sex: Female

DRUGS (4)
  1. LYSODREN [Suspect]
     Indication: ADRENAL CARCINOMA
     Dosage: INTERRUPTED ON 24FEB2010.RESTARTED WITH 1.5MG ON 07OCT2010.
     Dates: start: 20090610
  2. SIMVASTATIN [Concomitant]
  3. HYDROCORTISONE [Concomitant]
  4. LEVOTHYROXINE SODIUM [Concomitant]

REACTIONS (4)
  - BLOOD CHOLESTEROL INCREASED [None]
  - DIZZINESS [None]
  - DRUG LEVEL BELOW THERAPEUTIC [None]
  - DYSGEUSIA [None]
